FAERS Safety Report 18825072 (Version 1)
Quarter: 2021Q1

REPORT INFORMATION
  Report Type: Spontaneous
  Country: RS (occurrence: RS)
  Receive Date: 20210202
  Receipt Date: 20210202
  Transmission Date: 20210419
  Serious: Yes (Other)
  Sender: FDA-Public Use
  Company Number: RS-BAUSCH-BL-2021-002832

PATIENT
  Age: 58 Year
  Sex: Male

DRUGS (4)
  1. METHOTREXATE. [Suspect]
     Active Substance: METHOTREXATE
     Indication: ANGIOCENTRIC LYMPHOMA
     Dosage: (VIM/ DEXA) REGIMEN, 3 INDUCTION COURSES
     Route: 065
  2. ETOPOSIDE. [Suspect]
     Active Substance: ETOPOSIDE
     Indication: ANGIOCENTRIC LYMPHOMA
     Dosage: (VIM/ DEXA) REGIMEN, 3 INDUCTION COURSES
     Route: 065
  3. IFOSFAMIDE. [Suspect]
     Active Substance: IFOSFAMIDE
     Indication: ANGIOCENTRIC LYMPHOMA
     Dosage: (VIM/ DEXA) REGIMEN, 3 INDUCTION COURSES
     Route: 065
  4. DEXAMETHASONE. [Suspect]
     Active Substance: DEXAMETHASONE
     Indication: ANGIOCENTRIC LYMPHOMA
     Dosage: 3 INDUCTION COURSES, (VIM/ DEXA) REGIMEN, HIGH DOSE
     Route: 065

REACTIONS (3)
  - Infection [Unknown]
  - Blood disorder [Unknown]
  - Drug intolerance [Unknown]
